FAERS Safety Report 15243090 (Version 2)
Quarter: 2018Q3

REPORT INFORMATION
  Report Type: Spontaneous
  Country: US (occurrence: US)
  Receive Date: 20180806
  Receipt Date: 20180825
  Transmission Date: 20181010
  Serious: No
  Sender: FDA-Public Use
  Company Number: US-JNJFOC-20180731674

PATIENT
  Age: 77 Year
  Sex: Male
  Weight: 96.16 kg

DRUGS (3)
  1. IMODIUM A?D [Suspect]
     Active Substance: LOPERAMIDE HYDROCHLORIDE
     Indication: DIARRHOEA
     Dosage: HALF CAPLET
     Route: 065
  2. IMODIUM A?D [Suspect]
     Active Substance: LOPERAMIDE HYDROCHLORIDE
     Indication: DIARRHOEA
     Route: 065
  3. IMODIUM A?D [Suspect]
     Active Substance: LOPERAMIDE HYDROCHLORIDE
     Indication: DIARRHOEA
     Dosage: HALF TABLET
     Route: 065

REACTIONS (1)
  - Incorrect dose administered [Unknown]
